FAERS Safety Report 5594317-5 (Version None)
Quarter: 2008Q1

REPORT INFORMATION
  Report Type: 
  Country: None (occurrence: None)
  Receive Date: 20080117
  Receipt Date: 20080110
  Transmission Date: 20080703
  Serious: Yes (Hospitalization, Other)
  Sender: FDA-Public Use
  Company Number: PHEH2008US00714

PATIENT
  Age: 78 Year
  Sex: Female

DRUGS (6)
  1. DIOVAN [Suspect]
     Dosage: 40 MG, UNK
  2. DIOVAN [Suspect]
     Dosage: 80 MG, UNK
  3. COREG [Suspect]
     Dosage: 0.3 MG, UNK
  4. ATIVAN [Suspect]
  5. ATARAX [Suspect]
  6. INSULIN [Concomitant]

REACTIONS (5)
  - BLINDNESS [None]
  - CEREBROVASCULAR ACCIDENT [None]
  - CONVULSION [None]
  - PURPURA [None]
  - RASH [None]
